FAERS Safety Report 4565136-3 (Version None)
Quarter: 2005Q1

REPORT INFORMATION
  Report Type: 
  Country: None (occurrence: None)
  Receive Date: 20050131
  Receipt Date: 20041122
  Transmission Date: 20050727
  Serious: Yes (Hospitalization)
  Sender: FDA-Public Use
  Company Number: 200414420FR

PATIENT
  Age: 88 Year
  Sex: Female

DRUGS (4)
  1. KETEK [Suspect]
     Indication: BRONCHITIS ACUTE
     Route: 048
     Dates: start: 20041008, end: 20041009
  2. MUXOL [Concomitant]
  3. ESBERIVEN [Concomitant]
     Indication: VENOUS INSUFFICIENCY
     Route: 048
  4. LANZOR [Concomitant]
     Indication: HIATUS HERNIA

REACTIONS (8)
  - DIARRHOEA [None]
  - DRUG HYPERSENSITIVITY [None]
  - DYSPNOEA [None]
  - LEUKOPENIA [None]
  - PURPURA [None]
  - PYREXIA [None]
  - THROMBOCYTOPENIA [None]
  - TREMOR [None]
